FAERS Safety Report 23232705 (Version 1)
Quarter: 2023Q4

REPORT INFORMATION
  Report Type: Spontaneous
  Country: US (occurrence: US)
  Receive Date: 20231128
  Receipt Date: 20231128
  Transmission Date: 20240110
  Serious: Yes (Hospitalization, Other)
  Sender: FDA-Public Use
  Company Number: US-AMGEN-USASP2023207078

PATIENT
  Age: 59 Year
  Sex: Male

DRUGS (6)
  1. ADALIMUMAB [Suspect]
     Active Substance: ADALIMUMAB\ISOPROPYL ALCOHOL
     Indication: Psoriasis
     Dosage: UNK
     Route: 065
  2. INFLIXIMAB [Suspect]
     Active Substance: INFLIXIMAB
     Indication: Psoriasis
     Dosage: UNK
     Route: 065
  3. DUPILUMAB [Suspect]
     Active Substance: DUPILUMAB
     Indication: Psoriasis
     Route: 065
  4. GUSELKUMAB [Suspect]
     Active Substance: GUSELKUMAB
     Indication: Psoriasis
     Dosage: UNK
     Route: 065
  5. PREDNISONE [Concomitant]
     Active Substance: PREDNISONE
     Dosage: UNK
     Route: 065
  6. CYCLOSPORINE [Concomitant]
     Active Substance: CYCLOSPORINE
     Dosage: THREE TIMES A DAY
     Route: 065

REACTIONS (6)
  - Dermatitis exfoliative generalised [Unknown]
  - Rash pruritic [Unknown]
  - Delusion of parasitosis [Recovered/Resolved]
  - Pathological fracture [Unknown]
  - Renal impairment [Unknown]
  - Treatment failure [Unknown]
